FAERS Safety Report 20722217 (Version 1)
Quarter: 2022Q2

REPORT INFORMATION
  Report Type: Spontaneous
  Country: US (occurrence: US)
  Receive Date: 20220418
  Receipt Date: 20220418
  Transmission Date: 20220720
  Serious: Yes (Other)
  Sender: FDA-Public Use
  Company Number: US-AMERICAN REGENT INC-2022001053

PATIENT
  Age: 50 Year
  Sex: Male

DRUGS (11)
  1. DEXAMETHASONE SODIUM PHOSPHATE [Suspect]
     Active Substance: DEXAMETHASONE SODIUM PHOSPHATE
     Indication: Anaphylactic reaction
     Dosage: 10 MILLIGRAM
     Route: 042
  2. EPINEPHRINE [Suspect]
     Active Substance: EPINEPHRINE
     Indication: Anaphylactic reaction
     Dosage: 0.5 MILLIGRAM
     Route: 030
  3. EPINEPHRINE [Suspect]
     Active Substance: EPINEPHRINE
     Dosage: 0.3 MILLIGRAM
     Route: 030
  4. EPINEPHRINE [Suspect]
     Active Substance: EPINEPHRINE
     Dosage: UNK
  5. DIPHENHYDRAMINE [Suspect]
     Active Substance: DIPHENHYDRAMINE
     Indication: Anaphylactic reaction
     Dosage: 50 MILLIGRAM
     Route: 065
  6. ALBUTEROL SULFATE\IPRATROPIUM BROMIDE [Suspect]
     Active Substance: ALBUTEROL SULFATE\IPRATROPIUM BROMIDE
     Indication: Anaphylactic reaction
     Dosage: UNK
  7. RACEPINEPHRINE [Suspect]
     Active Substance: RACEPINEPHRINE
     Indication: Anaphylactic reaction
     Dosage: UNK
  8. FAMOTIDINE [Suspect]
     Active Substance: FAMOTIDINE
     Indication: Anaphylactic reaction
     Dosage: 20 MILLIGRAM
     Route: 042
  9. APIXABAN [Concomitant]
     Active Substance: APIXABAN
     Indication: Product used for unknown indication
     Dosage: UNK
     Route: 065
  10. CARVEDILOL [Concomitant]
     Active Substance: CARVEDILOL
     Indication: Product used for unknown indication
     Dosage: UNK
     Route: 065
  11. METFORMIN [Concomitant]
     Active Substance: METFORMIN HYDROCHLORIDE
     Indication: Product used for unknown indication
     Dosage: UNK
     Route: 065

REACTIONS (3)
  - Drug ineffective [Recovered/Resolved]
  - Anaphylactic reaction [Recovered/Resolved]
  - Incorrect route of product administration [Unknown]
